FAERS Safety Report 9704219 (Version 2)
Quarter: 2013Q4

REPORT INFORMATION
  Report Type: Spontaneous
  Country: JP (occurrence: JP)
  Receive Date: 20131122
  Receipt Date: 20131122
  Transmission Date: 20140711
  Serious: Yes (Other)
  Sender: FDA-Public Use
  Company Number: JP-ELI_LILLY_AND_COMPANY-JP201310003016

PATIENT
  Age: 80 Year
  Sex: Female

DRUGS (6)
  1. FORTEO [Suspect]
     Indication: OSTEOPOROSIS
     Dosage: 20 MG, QD
     Route: 058
  2. DETRUSITOL [Concomitant]
     Indication: POLLAKIURIA
  3. RABEPRAZOLE SODIUM [Concomitant]
  4. ARICEPT [Concomitant]
  5. MAGMITT [Concomitant]
  6. MEILAX [Concomitant]

REACTIONS (2)
  - Myelodysplastic syndrome [Unknown]
  - Iron deficiency anaemia [Unknown]
